FAERS Safety Report 19844121 (Version 1)
Quarter: 2021Q3

REPORT INFORMATION
  Report Type: Spontaneous
  Country: SE (occurrence: SE)
  Receive Date: 20210917
  Receipt Date: 20210917
  Transmission Date: 20211014
  Serious: Yes (Other)
  Sender: FDA-Public Use
  Company Number: SE-SA-2021SA303752

PATIENT
  Sex: Male

DRUGS (2)
  1. STILNOCT [Suspect]
     Active Substance: ZOLPIDEM TARTRATE
     Indication: INSOMNIA
  2. STILNOCT [Suspect]
     Active Substance: ZOLPIDEM TARTRATE
     Indication: PAIN
     Dosage: UNK
     Dates: start: 2008

REACTIONS (3)
  - Restless legs syndrome [Unknown]
  - Drug dependence [Unknown]
  - Product use issue [Unknown]
